FAERS Safety Report 7826626-0 (Version None)
Quarter: 2011Q4

REPORT INFORMATION
  Report Type: 
  Country: None (occurrence: None)
  Receive Date: 20111020
  Receipt Date: 20110804
  Transmission Date: 20120403
  Serious: No
  Sender: FDA-Public Use
  Company Number: US-MYLANLABS-2011S1016428

PATIENT
  Age: 68 Year
  Sex: Female
  Weight: 73.94 kg

DRUGS (1)
  1. BUPROPION HYDROCHLORIDE [Suspect]
     Indication: WEIGHT DECREASED
     Route: 048
     Dates: start: 20110701, end: 20110701

REACTIONS (1)
  - RASH [None]
